FAERS Safety Report 7603060-X (Version None)
Quarter: 2011Q3

REPORT INFORMATION
  Report Type: 
  Country: None (occurrence: None)
  Receive Date: 20110701
  Receipt Date: 20110617
  Transmission Date: 20111222
  Serious: Yes (Hospitalization)
  Sender: FDA-Public Use
  Company Number: 1000021776

PATIENT
  Age: 18 Year
  Sex: Female

DRUGS (3)
  1. ESCITALOPRAM [Suspect]
     Indication: DEPRESSION
     Dosage: ORAL OVERDOSE OF ESCITALOPRAM
     Route: 048
     Dates: start: 20100101, end: 20100101
  2. ESCITALOPRAM [Suspect]
     Indication: DEPRESSION
     Dosage: ORAL OVERDOSE OF ESCITALOPRAM
     Route: 048
     Dates: start: 20110401, end: 20110401
  3. XANAX [Suspect]
     Indication: ANXIETY
     Dosage: (0.25 MG, IF NECESSARY), ORAL OVERDOSE (ONCE)

REACTIONS (3)
  - ABNORMAL BEHAVIOUR [None]
  - INCORRECT DOSE ADMINISTERED [None]
  - PARTNER STRESS [None]
